FAERS Safety Report 9269702 (Version 2)
Quarter: 2013Q2

REPORT INFORMATION
  Report Type: Report from Study
  Country: DE (occurrence: DE)
  Receive Date: 20130503
  Receipt Date: 20130509
  Transmission Date: 20140414
  Serious: Yes (Hospitalization)
  Sender: FDA-Public Use
  Company Number: DE-009507513-1104DEU00026

PATIENT
  Age: 67 Year
  Sex: Female
  Weight: 69 kg

DRUGS (3)
  1. VORINOSTAT [Suspect]
     Indication: SARCOMA METASTATIC
     Dosage: 400 MG, QD
     Route: 048
     Dates: start: 20110322, end: 20110331
  2. VORINOSTAT [Suspect]
     Indication: SARCOMA METASTATIC
     Dosage: 300 MG, QD
     Route: 048
     Dates: start: 20110401, end: 20110401
  3. VORINOSTAT [Suspect]
     Dosage: 300 MG, QD
     Route: 048
     Dates: start: 20110405, end: 20110510

REACTIONS (2)
  - Febrile infection [Recovered/Resolved]
  - Thrombocytopenia [Recovered/Resolved]
